FAERS Safety Report 20623813 (Version 4)
Quarter: 2022Q2

REPORT INFORMATION
  Report Type: Spontaneous
  Country: JP (occurrence: JP)
  Receive Date: 20220322
  Receipt Date: 20220413
  Transmission Date: 20220721
  Serious: Yes (Death, Other)
  Sender: FDA-Public Use
  Company Number: JP-MSD-2203JPN001887J

PATIENT
  Age: 66 Year
  Sex: Male

DRUGS (1)
  1. KEYTRUDA [Suspect]
     Active Substance: PEMBROLIZUMAB
     Indication: Oropharyngeal squamous cell carcinoma
     Dosage: UNK
     Route: 041

REACTIONS (4)
  - Inappropriate antidiuretic hormone secretion [Unknown]
  - Malignant neoplasm progression [Fatal]
  - Liver disorder [Unknown]
  - Dysphagia [Unknown]
